FAERS Safety Report 4656056-4 (Version None)
Quarter: 2005Q2

REPORT INFORMATION
  Report Type: 
  Country: None (occurrence: None)
  Receive Date: 20050509
  Receipt Date: 20040224
  Transmission Date: 20051028
  Serious: Yes (Hospitalization)
  Sender: FDA-Public Use
  Company Number: DE-NOVOPROD-235513

PATIENT
  Age: 54 Year
  Sex: Female
  Weight: 70 kg

DRUGS (2)
  1. ACTIVELLE [Suspect]
     Indication: HORMONE REPLACEMENT THERAPY
     Dates: start: 20001001, end: 20030901
  2. BISOPROLOL FUMARATE [Concomitant]

REACTIONS (7)
  - BRADYCARDIA [None]
  - BRAIN SCAN ABNORMAL [None]
  - ENCEPHALOPATHY [None]
  - HYPERTENSION [None]
  - LACUNAR INFARCTION [None]
  - VENOUS ANGIOMA OF BRAIN [None]
  - VENTRICULAR EXTRASYSTOLES [None]
